FAERS Safety Report 7626801-4 (Version None)
Quarter: 2011Q3

REPORT INFORMATION
  Report Type: 
  Country: None (occurrence: None)
  Receive Date: 20110721
  Receipt Date: 20110222
  Transmission Date: 20111222
  Serious: No
  Sender: FDA-Public Use
  Company Number: US-BAYER-2011-051839

PATIENT
  Age: 40 Year
  Sex: Female
  Weight: 57.596 kg

DRUGS (1)
  1. ALEVE (CAPLET) [Suspect]
     Indication: ARTHRALGIA
     Dosage: 4 CAPLETS IN 24 HOURS, BOTTLE COUNT 150S
     Route: 048
     Dates: start: 20110221, end: 20110222

REACTIONS (1)
  - NO ADVERSE EVENT [None]
